FAERS Safety Report 25587666 (Version 1)
Quarter: 2025Q3

REPORT INFORMATION
  Report Type: Spontaneous
  Country: JP (occurrence: JP)
  Receive Date: 20250721
  Receipt Date: 20250721
  Transmission Date: 20251020
  Serious: Yes (Other)
  Sender: EISAI
  Company Number: JP-Eisai-202504767_LEN-RCC_P_1

PATIENT
  Sex: Male

DRUGS (4)
  1. LENVATINIB [Suspect]
     Active Substance: LENVATINIB
     Indication: Renal cell carcinoma
  2. KEYTRUDA [Concomitant]
     Active Substance: PEMBROLIZUMAB
     Indication: Renal cell carcinoma
  3. TACROLIMUS [Concomitant]
     Active Substance: TACROLIMUS
     Indication: Product used for unknown indication
  4. EVEROLIMUS [Concomitant]
     Active Substance: EVEROLIMUS
     Indication: Product used for unknown indication

REACTIONS (3)
  - Adrenal insufficiency [Unknown]
  - Interstitial lung disease [Unknown]
  - Anal abscess [Unknown]
